FAERS Safety Report 12280925 (Version 5)
Quarter: 2016Q2

REPORT INFORMATION
  Report Type: Spontaneous
  Country: JP (occurrence: JP)
  Receive Date: 20160419
  Receipt Date: 20160603
  Transmission Date: 20160815
  Serious: Yes (Hospitalization)
  Sender: FDA-Public Use
  Company Number: JP-009507513-1604JPN010745

PATIENT
  Age: 25 Year
  Sex: Female

DRUGS (6)
  1. BELSOMRA [Suspect]
     Active Substance: SUVOREXANT
     Dosage: PERHAPS 13 TABLETS, UP TO 20 TABLETS
     Route: 048
     Dates: start: 20160412, end: 20160412
  2. EURODIN (ESTAZOLAM) [Concomitant]
     Dosage: DAILY DOSAGE UNKNOWN
     Route: 065
  3. DEPAS [Concomitant]
     Active Substance: ETIZOLAM
     Dosage: DAILY DOSAGE UNKNOWN
     Route: 065
  4. BELSOMRA [Suspect]
     Active Substance: SUVOREXANT
     Dosage: 20 MG, DAILY
     Route: 048
     Dates: end: 20160411
  5. VEGETAMIN B [Concomitant]
     Active Substance: CHLORPROMAZINE HYDROCHLORIDE\PHENOBARBITAL\PROMETHAZINE
     Dosage: DAILY DOSAGE UNKNOWN
     Route: 065
  6. SENIRAN [Concomitant]
     Active Substance: BROMAZEPAM
     Dosage: DAILY DOSAGE UNKNOWN
     Route: 065

REACTIONS (1)
  - Accidental overdose [Recovered/Resolved]

NARRATIVE: CASE EVENT DATE: 20160412
